FAERS Safety Report 10247458 (Version 1)
Quarter: 2014Q2

REPORT INFORMATION
  Report Type: Report from Study
  Country: AR (occurrence: AR)
  Receive Date: 20140619
  Receipt Date: 20140619
  Transmission Date: 20141212
  Serious: Yes (Other)
  Sender: FDA-Public Use
  Company Number: AR-BRISTOL-MYERS SQUIBB COMPANY-21018346

PATIENT
  Age: 59 Year
  Sex: Female

DRUGS (1)
  1. ABATACEPT SUBQ INJECTION 125MG/ML [Suspect]
     Dosage: INT ON 19FEB2014 + RESUMED ON 03JUN
     Route: 058
     Dates: start: 20130705

REACTIONS (1)
  - Hepatic enzyme increased [Recovered/Resolved]
